FAERS Safety Report 4967277-5 (Version None)
Quarter: 2006Q2

REPORT INFORMATION
  Report Type: 
  Country: None (occurrence: None)
  Receive Date: 20060403
  Receipt Date: 20060329
  Transmission Date: 20061013
  Serious: Yes (Hospitalization)
  Sender: FDA-Public Use
  Company Number: 13433

PATIENT
  Age: 29 Year
  Sex: Female
  Weight: 54.7 kg

DRUGS (24)
  1. CYTARABINE [Suspect]
     Indication: ACUTE MYELOID LEUKAEMIA
     Dosage: 2.37 G BID IV
     Route: 042
     Dates: start: 20041019, end: 20041024
  2. CYTARABINE [Suspect]
     Indication: LEUKAEMIA RECURRENT
     Dosage: 2.37 G BID IV
     Route: 042
     Dates: start: 20041019, end: 20041024
  3. RAMIPRIL [Concomitant]
  4. CARVEDILOL [Concomitant]
  5. GABAPENTIN [Concomitant]
  6. POTASSIUM [Concomitant]
  7. PANTOPRAZOLE [Concomitant]
  8. VORICONAZOLE [Concomitant]
  9. HYDROMORPHONE HYDROCHLORIDE [Concomitant]
  10. ACETAMINOPHEN AND HYDROCODONE BITARTRATE [Concomitant]
  11. ODANSETRON [Concomitant]
  12. METHYLPREDNISOLONE [Concomitant]
  13. PREDNISOLONE ACETATE OPHTHALMIC SUSPENSION/DROPS [Concomitant]
  14. ALLOPURINOL [Concomitant]
  15. LEVOFLOXACIN [Concomitant]
  16. VALTREX [Concomitant]
  17. PROPOXYPHENE [Concomitant]
  18. ACETAMINOPHEN [Concomitant]
  19. DIPHENHYDRAMINE HYDROCHLORIDE [Concomitant]
  20. FUROSEMIDE [Concomitant]
  21. PROMETHAZINE HCL [Concomitant]
  22. TRIAMCINOLONE [Concomitant]
  23. HYDROCORTISONE [Concomitant]
  24. LOPERAMIDE HYDROCHLORIDE [Concomitant]

REACTIONS (3)
  - ALPHA HAEMOLYTIC STREPTOCOCCAL INFECTION [None]
  - FEBRILE NEUTROPENIA [None]
  - LYMPHOCYTE COUNT DECREASED [None]
